FAERS Safety Report 8506079-X (Version None)
Quarter: 2012Q3

REPORT INFORMATION
  Report Type: 
  Country: None (occurrence: None)
  Receive Date: 20120712
  Receipt Date: 20120628
  Transmission Date: 20120928
  Serious: Yes (Other)
  Sender: FDA-Public Use
  Company Number: JP-ROCHE-1068624

PATIENT
  Age: 62 Year
  Sex: Male

DRUGS (3)
  1. MIRCERA [Suspect]
     Route: 042
     Dates: start: 20120302, end: 20120302
  2. MIRCERA [Suspect]
     Indication: NEPHROGENIC ANAEMIA
     Route: 042
     Dates: start: 20120104, end: 20120201
  3. MIRCERA [Suspect]
     Route: 042
     Dates: start: 20120301, end: 20120330

REACTIONS (1)
  - HAEMOGLOBIN DECREASED [None]
